FAERS Safety Report 6684258-4 (Version None)
Quarter: 2010Q2

REPORT INFORMATION
  Report Type: 
  Country: None (occurrence: None)
  Receive Date: 20100416
  Receipt Date: 20100406
  Transmission Date: 20101027
  Serious: No
  Sender: FDA-Public Use
  Company Number: US-JNJFOC-20100402360

PATIENT
  Sex: Female
  Weight: 66.68 kg

DRUGS (6)
  1. DURAGESIC-100 [Suspect]
     Indication: BACK PAIN
     Route: 062
  2. DIAZEPAM [Concomitant]
     Indication: MUSCLE SPASMS
     Route: 048
  3. ELAVIL [Concomitant]
     Indication: SLEEP DISORDER
     Route: 048
  4. TRAZODONE [Concomitant]
     Indication: SLEEP DISORDER
     Route: 048
  5. ZOLOFT [Concomitant]
     Indication: DEPRESSION
     Route: 048
  6. MORPHINE [Concomitant]
     Indication: BREAKTHROUGH PAIN
     Dosage: 1-1-1
     Route: 048

REACTIONS (4)
  - DRUG DOSE OMISSION [None]
  - PAIN [None]
  - PRODUCT QUALITY ISSUE [None]
  - WRONG TECHNIQUE IN DRUG USAGE PROCESS [None]
